FAERS Safety Report 12530518 (Version 1)
Quarter: 2016Q3

REPORT INFORMATION
  Report Type: Spontaneous
  Country: US (occurrence: US)
  Receive Date: 20160706
  Receipt Date: 20160706
  Transmission Date: 20161109
  Serious: Yes (Death, Hospitalization, Other)
  Sender: FDA-Public Use
  Company Number: US-GLAXOSMITHKLINE-US2016GSK095674

PATIENT
  Age: 46 Year
  Sex: Female

DRUGS (4)
  1. ATOVAQUONE. [Suspect]
     Active Substance: ATOVAQUONE
     Indication: ANTIFUNGAL PROPHYLAXIS
     Dosage: 1500 MG, TID
  2. CIDOFOVIR. [Concomitant]
     Active Substance: CIDOFOVIR
  3. GANCICLOVIR. [Suspect]
     Active Substance: GANCICLOVIR
  4. FOSCARNET [Concomitant]
     Active Substance: FOSCARNET

REACTIONS (17)
  - Treatment failure [Unknown]
  - Pyrexia [Unknown]
  - Deep vein thrombosis [Unknown]
  - Somnolence [Unknown]
  - Condition aggravated [Unknown]
  - Respiratory failure [Unknown]
  - Computerised tomogram thorax abnormal [Unknown]
  - Death [Fatal]
  - Infarction [Unknown]
  - Hypoxia [Unknown]
  - Cytomegalovirus infection [Unknown]
  - Adenovirus infection [Unknown]
  - Thrombocytopenia [Unknown]
  - Cognitive disorder [Unknown]
  - Drug resistance [Unknown]
  - Pneumonitis [Unknown]
  - Generalised tonic-clonic seizure [Unknown]
